FAERS Safety Report 24154218 (Version 1)
Quarter: 2024Q3

REPORT INFORMATION
  Report Type: Spontaneous
  Country: JP (occurrence: JP)
  Receive Date: 20240730
  Receipt Date: 20240730
  Transmission Date: 20241016
  Serious: Yes (Other)
  Sender: JOHNSON AND JOHNSON
  Company Number: JP-JNJFOC-20240777060

PATIENT

DRUGS (2)
  1. CANAGLIFLOZIN [Suspect]
     Active Substance: CANAGLIFLOZIN
     Indication: Product used for unknown indication
     Route: 048
  2. CANAGLIFLOZIN\TENELIGLIPTIN [Suspect]
     Active Substance: CANAGLIFLOZIN\TENELIGLIPTIN
     Indication: Product used for unknown indication
     Route: 048

REACTIONS (11)
  - Joint contracture [Unknown]
  - Cervical vertebral fracture [Unknown]
  - Hyperglycaemia [Unknown]
  - Colon cancer [Unknown]
  - Gastric cancer [Unknown]
  - Prerenal failure [Unknown]
  - Ureterolithiasis [Unknown]
  - Coronary artery stenosis [Unknown]
  - Myocardial ischaemia [Unknown]
  - Facial paralysis [Unknown]
  - Mass excision [Unknown]
